FAERS Safety Report 8300174-6 (Version None)
Quarter: 2012Q2

REPORT INFORMATION
  Report Type: 
  Country: None (occurrence: None)
  Receive Date: 20120420
  Receipt Date: 20120416
  Transmission Date: 20120825
  Serious: Yes (Hospitalization)
  Sender: FDA-Public Use
  Company Number: US-BAYER-2011-104465

PATIENT
  Age: 23 Year
  Sex: Female
  Weight: 85.714 kg

DRUGS (6)
  1. PEPCID [Concomitant]
  2. DIPHENHYDRAMINE HCL [Concomitant]
     Dosage: 50 MG, UNK
     Route: 048
     Dates: start: 20090706
  3. YAZ [Suspect]
     Indication: CONTRACEPTION
     Dosage: UNK
     Dates: start: 20080901, end: 20081201
  4. NSAID'S [Concomitant]
     Dosage: UNK
     Route: 048
     Dates: start: 20010101
  5. YAZ [Suspect]
     Dosage: UNK
     Dates: start: 20090820, end: 20091013
  6. BENADRYL [Concomitant]
     Dosage: 500 MG, PRN

REACTIONS (2)
  - MENORRHAGIA [None]
  - PULMONARY EMBOLISM [None]
